FAERS Safety Report 21132731 (Version 1)
Quarter: 2022Q3

REPORT INFORMATION
  Report Type: Spontaneous
  Country: SE (occurrence: SE)
  Receive Date: 20220726
  Receipt Date: 20220726
  Transmission Date: 20221027
  Serious: Yes (Hospitalization)
  Sender: FDA-Public Use
  Company Number: None

PATIENT
  Age: 77 Year
  Sex: Male

DRUGS (9)
  1. PACLITAXEL [Suspect]
     Active Substance: PACLITAXEL
     Indication: Laryngeal cancer metastatic
     Dosage: DOSE 2
     Dates: start: 20220629, end: 20220629
  2. CARBOPLATIN [Suspect]
     Active Substance: CARBOPLATIN
     Indication: Laryngeal cancer metastatic
     Dosage: DOSE 2
     Dates: start: 20220629, end: 20220629
  3. Alvedon forte 1 g Film-coated tablet [Concomitant]
     Indication: Product used for unknown indication
     Dosage: 1X3
  4. Betapred 0,5 mg Tablet [Concomitant]
     Indication: Product used for unknown indication
     Dosage: 6X1
  5. Targiniq 10 mg/5 mg depot tablet [Concomitant]
     Indication: Product used for unknown indication
     Dosage: DOSAGE: TWO TIMES?2
  6. GABAPENTIN [Concomitant]
     Active Substance: GABAPENTIN
     Indication: Product used for unknown indication
     Dosage: 300 MG X3
  7. MOVICOL [Concomitant]
     Active Substance: POLYETHYLENE GLYCOL 3350\POTASSIUM CHLORIDE\SODIUM BICARBONATE\SODIUM CHLORIDE
     Indication: Product used for unknown indication
     Dosage: 1-2 VB?1
  8. CYMBALTA [Concomitant]
     Active Substance: DULOXETINE HYDROCHLORIDE
     Indication: Product used for unknown indication
     Dosage: DOSAGE: TWO TIMES
  9. Targiniq 20 mg/10 mg Depot tablet [Concomitant]
     Indication: Product used for unknown indication
     Dosage: DOSAGE: TWO TIMES

REACTIONS (3)
  - Incontinence [Recovered/Resolved]
  - Delirium [Recovered/Resolved]
  - Dysarthria [Recovered/Resolved]

NARRATIVE: CASE EVENT DATE: 20220629
